FAERS Safety Report 17359831 (Version 1)
Quarter: 2020Q1

REPORT INFORMATION
  Report Type: Spontaneous
  Country: ES (occurrence: ES)
  Receive Date: 20200203
  Receipt Date: 20200203
  Transmission Date: 20200409
  Serious: Yes (Other)
  Sender: FDA-Public Use
  Company Number: ES-TEVA-2020-ES-1177730

PATIENT
  Age: 64 Year
  Sex: Female

DRUGS (1)
  1. BUPROPION (1131A) [Suspect]
     Active Substance: BUPROPION
     Indication: PERSONALITY DISORDER
     Dosage: 150 MG
     Route: 048
     Dates: start: 20190510, end: 20191216

REACTIONS (1)
  - Hallucination, visual [Recovered/Resolved]

NARRATIVE: CASE EVENT DATE: 20191201
